FAERS Safety Report 17050368 (Version 6)
Quarter: 2019Q4

REPORT INFORMATION
  Report Type: Spontaneous
  Country: CO (occurrence: CO)
  Receive Date: 20191119
  Receipt Date: 20191220
  Transmission Date: 20200122
  Serious: Yes (Hospitalization, Other)
  Sender: FDA-Public Use
  Company Number: CO-BIOMARINAP-CO-2019-126972

PATIENT
  Age: 24 Year
  Sex: Female

DRUGS (1)
  1. VIMIZIM [Suspect]
     Active Substance: ELOSULFASE ALFA
     Indication: MUCOPOLYSACCHARIDOSIS IV
     Dosage: 50 MILLIGRAM
     Dates: start: 20150408

REACTIONS (8)
  - Cervical cord compression [Unknown]
  - Feeling abnormal [Unknown]
  - Meningitis bacterial [Unknown]
  - Spinal cord infection [Unknown]
  - Wound secretion [Not Recovered/Not Resolved]
  - Paraesthesia [Unknown]
  - Pyrexia [Unknown]
  - Head discomfort [Unknown]

NARRATIVE: CASE EVENT DATE: 20191113
